FAERS Safety Report 8389964-1 (Version None)
Quarter: 2012Q2

REPORT INFORMATION
  Report Type: 
  Country: None (occurrence: None)
  Receive Date: 20120529
  Receipt Date: 20120505
  Transmission Date: 20120825
  Serious: No
  Sender: FDA-Public Use
  Company Number: US-PFIZER INC-2012126153

PATIENT
  Age: 60 Year

DRUGS (1)
  1. NICOTROL [Suspect]
     Dosage: UNK, APPROXIMATELY 4 TO 5 INSERTS EACH DAY
     Route: 045

REACTIONS (2)
  - INCORRECT DRUG ADMINISTRATION DURATION [None]
  - GASTROINTESTINAL DISORDER [None]
